FAERS Safety Report 12435606 (Version 1)
Quarter: 2016Q2

REPORT INFORMATION
  Report Type: Spontaneous
  Country: US (occurrence: US)
  Receive Date: 20160603
  Receipt Date: 20160603
  Transmission Date: 20160815
  Serious: No
  Sender: FDA-Public Use
  Company Number: US-ROCHE-1641860

PATIENT
  Sex: Female

DRUGS (2)
  1. XELODA [Suspect]
     Active Substance: CAPECITABINE
     Indication: NEOPLASM MALIGNANT
     Dosage: 3 (TWICE A DAY)
     Route: 048
     Dates: start: 20150803
  2. XELODA [Suspect]
     Active Substance: CAPECITABINE
     Dosage: 2 TABS TWICE A DAY
     Route: 048
     Dates: start: 20151003

REACTIONS (3)
  - White blood cell count decreased [Unknown]
  - Skin exfoliation [Unknown]
  - Decreased appetite [Unknown]
